FAERS Safety Report 10671427 (Version 2)
Quarter: 2015Q1

REPORT INFORMATION
  Report Type: Spontaneous
  Country: GB (occurrence: GB)
  Receive Date: 20141223
  Receipt Date: 20150119
  Transmission Date: 20150720
  Serious: Yes (Death, Other)
  Sender: FDA-Public Use
  Company Number: PHFR2014GB008924

PATIENT
  Age: 29 Year
  Sex: Male
  Weight: 71 kg

DRUGS (2)
  1. NILOTINIB [Suspect]
     Active Substance: NILOTINIB
     Indication: CHRONIC MYELOID LEUKAEMIA
     Dosage: 400 MG, BID
     Route: 048
     Dates: start: 20141021, end: 20141117
  2. APA//PARACETAMOL [Concomitant]
     Indication: PAIN
     Dosage: 1 G, QPS, PRN
     Route: 048

REACTIONS (3)
  - Haemorrhage intracranial [Fatal]
  - Circulatory collapse [Unknown]
  - Intraventricular haemorrhage [Unknown]

NARRATIVE: CASE EVENT DATE: 20141117
